FAERS Safety Report 16579885 (Version 3)
Quarter: 2020Q3

REPORT INFORMATION
  Report Type: Report from Study
  Country: FR (occurrence: FR)
  Receive Date: 20190716
  Receipt Date: 20200915
  Transmission Date: 20201102
  Serious: Yes (Hospitalization, Other)
  Sender: FDA-Public Use
  Company Number: FR-PFIZER INC-2019295153

PATIENT
  Age: 66 Year
  Sex: Male
  Weight: 97 kg

DRUGS (7)
  1. NEBIVOLOL. [Concomitant]
     Active Substance: NEBIVOLOL
     Dosage: 2.5 (NO UNITS PROVIDED) (2.5 OT)
     Route: 048
     Dates: start: 2013
  2. PERINDOPRIL [Concomitant]
     Active Substance: PERINDOPRIL
     Dosage: 8 (NO UNITS PROVIDED) (8OT)
     Route: 048
     Dates: start: 2013
  3. KARDEGIC [Concomitant]
     Active Substance: ASPIRIN DL-LYSINE
     Dosage: UNK
     Route: 048
     Dates: start: 2013, end: 20190429
  4. LEVOTHYROX [Concomitant]
     Active Substance: LEVOTHYROXINE
     Dosage: 225 (NO UNITS PROVIDED)(225 OT)
     Route: 048
     Dates: start: 2013
  5. AMLODIPINE BESILATE [Suspect]
     Active Substance: AMLODIPINE BESYLATE
     Dosage: 5 (NO UNITS PROVIDED) (5OT)
     Route: 048
     Dates: start: 20190527, end: 20190530
  6. JAKAVI [Suspect]
     Active Substance: RUXOLITINIB
     Indication: MYELOFIBROSIS
     Dosage: 10 MG, DAILY
     Route: 048
     Dates: start: 20190429, end: 20190524
  7. FUROSEMIDE. [Concomitant]
     Active Substance: FUROSEMIDE
     Dosage: 20 (NO UNITS PROVIDED) (20OT)
     Route: 048
     Dates: start: 2013

REACTIONS (3)
  - Thrombocytopenia [Not Recovered/Not Resolved]
  - Anaemia [Recovering/Resolving]
  - White blood cell count increased [Unknown]

NARRATIVE: CASE EVENT DATE: 20190524
